FAERS Safety Report 10270891 (Version 4)
Quarter: 2014Q3

REPORT INFORMATION
  Report Type: Spontaneous
  Country: US (occurrence: US)
  Receive Date: 20140701
  Receipt Date: 20140922
  Transmission Date: 20150326
  Serious: Yes (Hospitalization)
  Sender: FDA-Public Use
  Company Number: US-GLAXOSMITHKLINE-A1078426A

PATIENT
  Age: 60 Year
  Sex: Female

DRUGS (19)
  1. ERYTHROMYCIN. [Concomitant]
     Active Substance: ERYTHROMYCIN
  2. TYLENOL [Concomitant]
     Active Substance: ACETAMINOPHEN
  3. MULTIVITAMIN [Concomitant]
     Active Substance: VITAMINS
  4. INFLUENZA VACCINE UNSPECIFIED [Suspect]
     Active Substance: UNSPECIFIED INGREDIENT
     Indication: PROPHYLAXIS
     Route: 065
     Dates: start: 2013
  5. LORAZEPAM. [Concomitant]
     Active Substance: LORAZEPAM
  6. HYDROXYZINE [Concomitant]
     Active Substance: HYDROXYZINE\HYDROXYZINE HYDROCHLORIDE
  7. PRAVASTATIN [Concomitant]
     Active Substance: PRAVASTATIN\PRAVASTATIN SODIUM
  8. TRIAMCINOLONE [Concomitant]
     Active Substance: TRIAMCINOLONE
  9. ZYRTEC [Concomitant]
     Active Substance: CETIRIZINE HYDROCHLORIDE
  10. FLONASE [Concomitant]
     Active Substance: FLUTICASONE PROPIONATE
     Dates: start: 20060505, end: 20071011
  11. ZEASORB [Suspect]
     Active Substance: MICONAZOLE NITRATE
     Indication: PRURITUS
     Route: 061
     Dates: start: 201405, end: 201405
  12. MONTELUKAST [Concomitant]
     Active Substance: MONTELUKAST SODIUM
  13. PREDNISONE. [Concomitant]
     Active Substance: PREDNISONE
  14. ADVAIR HFA [Suspect]
     Active Substance: FLUTICASONE PROPIONATE\SALMETEROL XINAFOATE
     Indication: ASTHMA
     Dosage: 1PUFF TWICE PER DAY
     Route: 055
     Dates: start: 2002
  15. DOCUSATE SODIUM. [Suspect]
     Active Substance: DOCUSATE SODIUM
     Indication: PRODUCT USED FOR UNKNOWN INDICATION
     Route: 065
     Dates: start: 20140913
  16. METHYLPREDNISOLONE [Concomitant]
     Active Substance: METHYLPREDNISOLONE
  17. ALBUTEROL. [Concomitant]
     Active Substance: ALBUTEROL
  18. DOXYCYCLINE. [Concomitant]
     Active Substance: DOXYCYCLINE
  19. PROTONIX [Concomitant]
     Active Substance: PANTOPRAZOLE SODIUM

REACTIONS (39)
  - Acquired oesophageal web [Unknown]
  - Rosacea [Unknown]
  - Dizziness [Unknown]
  - Drug ineffective [Recovering/Resolving]
  - Dermatitis [Unknown]
  - Acrochordon [Unknown]
  - Neck pain [Unknown]
  - Malaise [Recovering/Resolving]
  - Abdominal pain [Recovering/Resolving]
  - Ill-defined disorder [Unknown]
  - Dry throat [Unknown]
  - Muscle spasms [Unknown]
  - Pain [Unknown]
  - Abdominal pain upper [Unknown]
  - Rash [Unknown]
  - Infection [Unknown]
  - Arthropod bite [Unknown]
  - Flatulence [Recovering/Resolving]
  - Chest pain [Unknown]
  - Urticaria [Unknown]
  - Pruritus [Recovered/Resolved]
  - Cholecystectomy [Unknown]
  - Wound [Unknown]
  - Bronchitis [Recovering/Resolving]
  - Diarrhoea [Unknown]
  - Abdominal pain [Unknown]
  - Muscular weakness [Unknown]
  - Rash generalised [Unknown]
  - Overdose [Unknown]
  - Vomiting [Recovering/Resolving]
  - Colitis [Unknown]
  - Gastrointestinal disorder [Unknown]
  - Dyspnoea [Recovering/Resolving]
  - Myalgia [Unknown]
  - Gastric disorder [Unknown]
  - Headache [Unknown]
  - Breast pain [Unknown]
  - Anxiety [Unknown]
  - Faeces discoloured [Recovering/Resolving]

NARRATIVE: CASE EVENT DATE: 2010
